FAERS Safety Report 26070617 (Version 1)
Quarter: 2025Q4

REPORT INFORMATION
  Report Type: Spontaneous
  Country: US (occurrence: US)
  Receive Date: 20251120
  Receipt Date: 20251120
  Transmission Date: 20260118
  Serious: No
  Sender: SANOFI AVENTIS
  Company Number: US-SA-2025SA346519

PATIENT
  Sex: Female

DRUGS (1)
  1. DUPIXENT [Suspect]
     Active Substance: DUPILUMAB
     Indication: Urticaria
     Dosage: 300 MG, QOW
     Route: 058
     Dates: end: 20251010

REACTIONS (4)
  - Eyelid thickening [Unknown]
  - Ocular discomfort [Unknown]
  - Eye swelling [Unknown]
  - Product use in unapproved indication [Unknown]
